FAERS Safety Report 22111449 (Version 1)
Quarter: 2023Q1

REPORT INFORMATION
  Report Type: Spontaneous
  Country: JP (occurrence: JP)
  Receive Date: 20230317
  Receipt Date: 20230317
  Transmission Date: 20230418
  Serious: Yes (Hospitalization, Other)
  Sender: FDA-Public Use
  Company Number: JP-MALLINCKRODT-MNK202300401

PATIENT
  Age: 85 Year
  Sex: Male

DRUGS (1)
  1. AMITIZA [Suspect]
     Active Substance: LUBIPROSTONE
     Indication: Constipation
     Dosage: UNKNOWN
     Route: 048

REACTIONS (2)
  - Pneumonia [Unknown]
  - Decreased appetite [Recovered/Resolved]
